FAERS Safety Report 6354475-1 (Version None)
Quarter: 2009Q3

REPORT INFORMATION
  Report Type: 
  Country: None (occurrence: None)
  Receive Date: 20090914
  Receipt Date: 20090619
  Transmission Date: 20100115
  Serious: Yes (Hospitalization, Other)
  Sender: FDA-Public Use
  Company Number: ES-NOVOPROD-288607

PATIENT
  Age: 84 Year
  Sex: Male

DRUGS (6)
  1. NOVOMIX 30 FLEXPEN [Suspect]
     Indication: TYPE 2 DIABETES MELLITUS
     Dosage: 30 IU, QD (12+12+6)
     Route: 058
     Dates: start: 20090126, end: 20090505
  2. RAMIPRIL [Concomitant]
     Dosage: 2.5 MG, QD
     Route: 048
  3. DARBEPOETIN ALFA [Concomitant]
     Indication: RENAL FAILURE CHRONIC
     Dosage: 60 UG, QD
     Route: 058
  4. BISOPROLOL [Concomitant]
     Indication: LEFT VENTRICULAR FAILURE
     Dosage: 10 MG, QD
     Route: 048
     Dates: start: 20081101
  5. FUROSEMIDE [Concomitant]
     Dosage: 40 MG, QD
     Route: 048
     Dates: end: 20090505
  6. ACENOCUMAROL [Concomitant]
     Dates: start: 20080501

REACTIONS (2)
  - APNOEA [None]
  - HYPOGLYCAEMIC UNCONSCIOUSNESS [None]
